FAERS Safety Report 7324389-9 (Version None)
Quarter: 2011Q1

REPORT INFORMATION
  Report Type: 
  Country: None (occurrence: None)
  Receive Date: 20110301
  Receipt Date: 20110228
  Transmission Date: 20110831
  Serious: Yes (Hospitalization)
  Sender: FDA-Public Use
  Company Number: US-PFIZER INC-2011043521

PATIENT
  Sex: Male

DRUGS (2)
  1. XYLOCAINE [Suspect]
     Indication: PAIN
     Dosage: UNK
  2. DEPO-MEDROL [Suspect]
     Indication: ARTHRALGIA
     Dosage: 40 MG, UNK

REACTIONS (1)
  - INFECTION [None]
